FAERS Safety Report 4419963-3 (Version None)
Quarter: 2004Q3

REPORT INFORMATION
  Report Type: 
  Country: None (occurrence: None)
  Receive Date: 20040809
  Receipt Date: 20040317
  Transmission Date: 20050211
  Serious: No
  Sender: FDA-Public Use
  Company Number: US-GLAXOSMITHKLINE-A0503202A

PATIENT
  Sex: Female

DRUGS (1)
  1. PAXIL [Suspect]
     Dosage: 90MG PER DAY
     Route: 048
     Dates: end: 20040315

REACTIONS (5)
  - ANGER [None]
  - CONFUSIONAL STATE [None]
  - HYPOAESTHESIA [None]
  - IRRITABILITY [None]
  - NAUSEA [None]
